FAERS Safety Report 8613882-4 (Version None)
Quarter: 2012Q3

REPORT INFORMATION
  Report Type: 
  Country: None (occurrence: None)
  Receive Date: 20120823
  Receipt Date: 20120810
  Transmission Date: 20120928
  Serious: Yes (Hospitalization, Other)
  Sender: FDA-Public Use
  Company Number: US-009507513-1204USA03125

PATIENT

DRUGS (9)
  1. PREMARIN [Concomitant]
  2. FOSAMAX [Suspect]
     Indication: OSTEOPENIA
     Dosage: UNK, QW
     Dates: start: 20010101, end: 20110409
  3. FOSAMAX [Suspect]
     Dosage: 10 UNK, UNK
  4. ATENOLOL [Concomitant]
     Indication: HYPERTENSION
  5. FOSAMAX [Suspect]
     Dosage: UNK
     Route: 048
     Dates: start: 20000101, end: 20110101
  6. FOSAMAX [Suspect]
     Dosage: 70 MG, QD
  7. PREDNISONE TAB [Concomitant]
     Indication: RHEUMATOID ARTHRITIS
     Dosage: 10 MG, BID
  8. FOSAMAX [Suspect]
     Indication: OSTEOPOROSIS
     Dosage: 5 MG, UNK
     Route: 048
     Dates: start: 20000601, end: 20020601
  9. ARAVA [Concomitant]

REACTIONS (25)
  - CYST REMOVAL [None]
  - VAGINAL LESION [None]
  - OVERDOSE [None]
  - VAGINAL INFECTION [None]
  - RHEUMATOID ARTHRITIS [None]
  - STRESS FRACTURE [None]
  - GROIN ABSCESS [None]
  - ANAEMIA OF CHRONIC DISEASE [None]
  - PYREXIA [None]
  - SURGERY [None]
  - SPINAL OPERATION [None]
  - HYSTERECTOMY [None]
  - FEMUR FRACTURE [None]
  - RADICULOPATHY [None]
  - CYST [None]
  - FOOT OPERATION [None]
  - HOT FLUSH [None]
  - PNEUMONIA [None]
  - MONOCLONAL GAMMOPATHY [None]
  - CERVICAL SPINAL STENOSIS [None]
  - SPINAL OSTEOARTHRITIS [None]
  - BREAST CALCIFICATIONS [None]
  - OPEN REDUCTION OF FRACTURE [None]
  - TRANSFUSION [None]
  - JOINT ARTHROPLASTY [None]
